FAERS Safety Report 16408388 (Version 2)
Quarter: 2019Q2

REPORT INFORMATION
  Report Type: Report from Study
  Country: US (occurrence: US)
  Receive Date: 20190610
  Receipt Date: 20190624
  Transmission Date: 20190711
  Serious: Yes (Hospitalization)
  Sender: FDA-Public Use
  Company Number: US-ROCHE-2332308

PATIENT
  Age: 60 Year
  Sex: Male
  Weight: 49.9 kg

DRUGS (7)
  1. ATEZOLIZUMAB. [Suspect]
     Active Substance: ATEZOLIZUMAB
     Indication: HEPATOCELLULAR CARCINOMA
     Dosage: MOST RECENT DOSE ON 28/DEC/2018
     Route: 042
     Dates: start: 20181203
  2. BEVACIZUMAB. [Suspect]
     Active Substance: BEVACIZUMAB
     Indication: HEPATOCELLULAR CARCINOMA
     Dosage: MOST RECENT DOSE ON 15/MAY/2019, 727.5 MG
     Route: 042
     Dates: start: 20181203
  3. METOPROLOL SUCCINATE. [Concomitant]
     Active Substance: METOPROLOL SUCCINATE
     Indication: HYPERTENSION
     Route: 065
     Dates: start: 20181115
  4. TRAMADOL. [Concomitant]
     Active Substance: TRAMADOL
     Indication: ABDOMINAL PAIN
     Route: 065
     Dates: start: 20181206
  5. MIRALAX [Concomitant]
     Active Substance: POLYETHYLENE GLYCOL 3350
     Indication: CONSTIPATION
     Route: 065
     Dates: start: 20190115
  6. VITAMIN B [Concomitant]
     Active Substance: VITAMIN B
  7. PREDNISONE. [Concomitant]
     Active Substance: PREDNISONE
     Indication: HERNIA
     Route: 048
     Dates: start: 20190227

REACTIONS (1)
  - Hydrocele [Recovering/Resolving]

NARRATIVE: CASE EVENT DATE: 20190601
